FAERS Safety Report 6231323-1 (Version None)
Quarter: 2009Q2

REPORT INFORMATION
  Report Type: 
  Country: None (occurrence: None)
  Receive Date: 20090611
  Receipt Date: 20090601
  Transmission Date: 20091009
  Serious: Yes (Hospitalization, Other)
  Sender: FDA-Public Use
  Company Number: AU-WYE-H09657409

PATIENT
  Age: 84 Year
  Sex: Female

DRUGS (3)
  1. AMIODARONE HCL [Suspect]
  2. ACTONEL [Suspect]
     Dosage: ORAL
     Route: 048
     Dates: start: 20090312, end: 20090408
  3. VITAMINS [Concomitant]

REACTIONS (1)
  - CONSTIPATION [None]
